FAERS Safety Report 9173271 (Version 2)
Quarter: 2013Q2

REPORT INFORMATION
  Report Type: Spontaneous
  Country: JP (occurrence: JP)
  Receive Date: 20130320
  Receipt Date: 20130528
  Transmission Date: 20140414
  Serious: No
  Sender: FDA-Public Use
  Company Number: JP-JNJFOC-20130306483

PATIENT
  Age: 86 Year
  Sex: Male
  Weight: 72 kg

DRUGS (11)
  1. XARELTO [Suspect]
     Indication: CEREBROVASCULAR ACCIDENT PROPHYLAXIS
     Route: 048
     Dates: start: 20130106, end: 20130121
  2. XARELTO [Suspect]
     Indication: ATRIAL FIBRILLATION
     Route: 048
     Dates: start: 20130106, end: 20130121
  3. AMLODIN [Concomitant]
     Indication: HYPERTENSION
     Route: 048
     Dates: start: 20121227
  4. FLIVAS [Concomitant]
     Indication: BENIGN PROSTATIC HYPERPLASIA
     Route: 048
     Dates: start: 20121227
  5. LENDORMIN D [Concomitant]
     Route: 048
  6. LYRICA [Concomitant]
     Route: 048
     Dates: start: 20121227
  7. CEREKINON [Concomitant]
     Route: 048
     Dates: start: 20121227
  8. DEPAS [Concomitant]
     Route: 048
     Dates: start: 20121227
  9. TAKEPRON [Concomitant]
     Route: 048
     Dates: start: 20121128
  10. LASIX [Concomitant]
     Indication: PLEURAL EFFUSION
     Route: 048
     Dates: start: 20121227
  11. ALLELOCK [Concomitant]
     Indication: PRURITUS
     Route: 048
     Dates: start: 20130114

REACTIONS (1)
  - Eosinophil count increased [Recovering/Resolving]
